FAERS Safety Report 9171347 (Version 1)
Quarter: 2013Q1

REPORT INFORMATION
  Report Type: Report from Study
  Country: DE (occurrence: DE)
  Receive Date: 20130319
  Receipt Date: 20130319
  Transmission Date: 20140127
  Serious: Yes (Hospitalization)
  Sender: FDA-Public Use
  Company Number: DE-ROCHE-1203627

PATIENT
  Age: 58 Year
  Sex: Female
  Weight: 68.9 kg

DRUGS (1)
  1. BEVACIZUMAB [Suspect]
     Indication: RECTAL CANCER
     Route: 042

REACTIONS (1)
  - Femur fracture [Not Recovered/Not Resolved]
